FAERS Safety Report 22365511 (Version 1)
Quarter: 2023Q2

REPORT INFORMATION
  Report Type: Spontaneous
  Country: US (occurrence: US)
  Receive Date: 20230525
  Receipt Date: 20230525
  Transmission Date: 20230721
  Serious: No
  Sender: FDA-Public Use
  Company Number: US-UCBSA-2023007083

PATIENT
  Sex: Male

DRUGS (2)
  1. CIMZIA [Suspect]
     Active Substance: CERTOLIZUMAB PEGOL
     Indication: Psoriasis
     Dosage: 200 MILLIGRAM, EV 2 WEEKS(QOW)
     Route: 058
  2. TRIAMCINOLONE [Suspect]
     Active Substance: TRIAMCINOLONE
     Indication: Product used for unknown indication
     Dosage: UNK

REACTIONS (3)
  - Drug hypersensitivity [Unknown]
  - Drug intolerance [Unknown]
  - Contraindicated product administered [Unknown]
